FAERS Safety Report 8053880-5 (Version None)
Quarter: 2012Q1

REPORT INFORMATION
  Report Type: 
  Country: None (occurrence: None)
  Receive Date: 20120118
  Receipt Date: 20120112
  Transmission Date: 20120608
  Serious: Yes (Other)
  Sender: FDA-Public Use
  Company Number: US-AMGEN-USASP2012002452

PATIENT
  Age: 64 Year
  Sex: Female

DRUGS (2)
  1. ENBREL [Suspect]
     Indication: RHEUMATOID ARTHRITIS
     Dosage: 50 MG, QWK
     Dates: start: 20111019, end: 20111026
  2. ENBREL [Suspect]
     Indication: PSORIASIS

REACTIONS (7)
  - HALLUCINATION [None]
  - PAIN IN EXTREMITY [None]
  - SOMNOLENCE [None]
  - ABNORMAL DREAMS [None]
  - NECK PAIN [None]
  - ARTHRALGIA [None]
  - PSORIASIS [None]
